FAERS Safety Report 12772655 (Version 3)
Quarter: 2017Q3

REPORT INFORMATION
  Report Type: Report from Study
  Country: None (occurrence: AU)
  Receive Date: 20160922
  Receipt Date: 20170928
  Transmission Date: 20171127
  Serious: Yes (Death, Hospitalization)
  Sender: FDA-Public Use
  Company Number: AU-ABBVIE-16P-008-1728540-00

PATIENT
  Age: 64 Year
  Sex: Female
  Weight: 76 kg

DRUGS (8)
  1. HYDROMOPHONE MR [Concomitant]
     Indication: PAIN
     Dates: start: 20160730
  2. COLOXYL WITH SENNA [Concomitant]
     Active Substance: DOCUSATE\SENNOSIDES
     Indication: CONSTIPATION PROPHYLAXIS
     Dates: start: 20160910, end: 20161018
  3. VENETOCLAX. [Suspect]
     Active Substance: VENETOCLAX
     Indication: BREAST CANCER METASTATIC
     Dosage: TREATED WITH 2 CYCLES
     Route: 048
  4. HYDROMORPHONE IG [Concomitant]
     Indication: PAIN
     Dates: start: 20160730
  5. MOVICOL [Concomitant]
     Active Substance: POLYETHYLENE GLYCOL 3350\POTASSIUM CHLORIDE\SODIUM BICARBONATE\SODIUM CHLORIDE
     Indication: CONSTIPATION PROPHYLAXIS
     Dates: start: 20160910, end: 20161018
  6. ENOXAPARIN [Concomitant]
     Active Substance: ENOXAPARIN
     Indication: THROMBOSIS PROPHYLAXIS
     Dates: start: 20160911, end: 20161017
  7. PREGABALIN. [Concomitant]
     Active Substance: PREGABALIN
     Indication: PAIN
     Dates: start: 201608
  8. TAMOXIFEN [Concomitant]
     Active Substance: TAMOXIFEN
     Indication: BREAST CANCER METASTATIC
     Dates: end: 20160627

REACTIONS (2)
  - Post herpetic neuralgia [Recovered/Resolved]
  - Breast cancer metastatic [Fatal]

NARRATIVE: CASE EVENT DATE: 2011
